FAERS Safety Report 8414361-X (Version None)
Quarter: 2012Q2

REPORT INFORMATION
  Report Type: 
  Country: None (occurrence: None)
  Receive Date: 20120605
  Receipt Date: 20120601
  Transmission Date: 20120825
  Serious: No
  Sender: FDA-Public Use
  Company Number: US-BAYER-2012-055032

PATIENT
  Sex: Male

DRUGS (3)
  1. IBUPROFEN [Concomitant]
  2. ZOLPIDEM [Concomitant]
  3. BETASERON [Suspect]
     Dosage: 0.25 MG (1ML), QOD
     Route: 058

REACTIONS (4)
  - PAIN [None]
  - INJECTION SITE INDURATION [None]
  - INJECTION SITE MASS [None]
  - INFLUENZA LIKE ILLNESS [None]
